FAERS Safety Report 13607108 (Version 1)
Quarter: 2017Q2

REPORT INFORMATION
  Report Type: Spontaneous
  Country: PT (occurrence: PT)
  Receive Date: 20170602
  Receipt Date: 20170602
  Transmission Date: 20170830
  Serious: Yes (Other)
  Sender: FDA-Public Use
  Company Number: PT-ACCORD-052121

PATIENT
  Age: 39 Year
  Sex: Female

DRUGS (2)
  1. CAPECITABINA ACCORD [Suspect]
     Active Substance: CAPECITABINE
     Indication: PRODUCT USED FOR UNKNOWN INDICATION
     Route: 048
     Dates: start: 20170418
  2. LAPATINIB/LAPATINIB DITOSYLATE [Concomitant]

REACTIONS (2)
  - Toxic skin eruption [Unknown]
  - Rash [Unknown]

NARRATIVE: CASE EVENT DATE: 20170418
